FAERS Safety Report 4386457-3 (Version None)
Quarter: 2004Q2

REPORT INFORMATION
  Report Type: 
  Country: None (occurrence: None)
  Receive Date: 20040629
  Receipt Date: 20040205
  Transmission Date: 20050107
  Serious: Yes (Life-Threatening, Hospitalization)
  Sender: FDA-Public Use
  Company Number: BR-ROCHE-358103

PATIENT
  Age: 35 Year
  Sex: Male
  Weight: 62 kg

DRUGS (41)
  1. MYCOPHENOLATE MOFETIL [Suspect]
     Route: 048
     Dates: start: 20031125, end: 20040317
  2. MYCOPHENOLATE MOFETIL [Suspect]
     Route: 048
     Dates: start: 20030923, end: 20031015
  3. MYCOPHENOLATE MOFETIL [Suspect]
     Route: 048
     Dates: start: 20031016, end: 20031030
  4. MYCOPHENOLATE MOFETIL [Suspect]
     Route: 048
     Dates: start: 20031101, end: 20031115
  5. MYCOPHENOLATE MOFETIL [Suspect]
     Route: 048
     Dates: start: 20031116, end: 20031123
  6. MYCOPHENOLATE MOFETIL [Suspect]
     Route: 048
     Dates: start: 20031124, end: 20031124
  7. MYCOPHENOLATE MOFETIL [Suspect]
     Route: 048
     Dates: start: 20040323
  8. MYCOPHENOLATE MOFETIL [Suspect]
     Route: 048
     Dates: start: 20040408
  9. MYCOPHENOLATE MOFETIL [Suspect]
     Route: 048
     Dates: start: 20040612, end: 20040612
  10. MYCOPHENOLATE MOFETIL [Suspect]
     Route: 048
     Dates: start: 20040613
  11. DACLIZUMAB [Suspect]
     Route: 042
     Dates: start: 20030924, end: 20030924
  12. DACLIZUMAB [Suspect]
     Route: 042
     Dates: start: 20031003, end: 20031104
  13. SIROLIMUS [Suspect]
     Route: 048
     Dates: start: 20040203, end: 20040317
  14. SIROLIMUS [Suspect]
     Route: 048
     Dates: start: 20030923, end: 20030925
  15. SIROLIMUS [Suspect]
     Route: 048
     Dates: start: 20030926, end: 20031003
  16. SIROLIMUS [Suspect]
     Route: 048
     Dates: start: 20031004, end: 20031013
  17. SIROLIMUS [Suspect]
     Route: 048
     Dates: start: 20031014, end: 20031023
  18. SIROLIMUS [Suspect]
     Route: 048
     Dates: start: 20031024, end: 20031105
  19. SIROLIMUS [Suspect]
     Route: 048
     Dates: start: 20031106, end: 20040202
  20. SIROLIMUS [Suspect]
     Route: 048
     Dates: start: 20040318
  21. SIROLIMUS [Suspect]
     Route: 048
     Dates: start: 20040602, end: 20040616
  22. PREDNISONE [Suspect]
     Route: 048
     Dates: start: 20040218
  23. PREDNISONE [Suspect]
     Route: 048
     Dates: start: 20030926, end: 20031009
  24. PREDNISONE [Suspect]
     Route: 048
     Dates: start: 20031010, end: 20031020
  25. PREDNISONE [Suspect]
     Route: 048
     Dates: start: 20031021, end: 20040109
  26. PREDNISONE [Suspect]
     Route: 048
     Dates: start: 20040110, end: 20040217
  27. PREDNISONE [Suspect]
     Route: 048
     Dates: start: 20040408
  28. METHYLPREDNISOLONE [Suspect]
     Dosage: FREQUENCY PROVIDED AS 'ONCE'.
     Route: 042
     Dates: start: 20030923, end: 20030923
  29. METHYLPREDNISOLONE [Suspect]
     Dosage: FREQUENCY PROVIDED AS 'ONCE'.
     Route: 042
     Dates: start: 20030924, end: 20030924
  30. METHYLPREDNISOLONE [Suspect]
     Dosage: FREQUENCY PROVIDED AS 'ONCE'.
     Route: 042
     Dates: start: 20030925, end: 20031003
  31. METHYLPREDNISOLONE [Suspect]
     Dosage: FREQUENCY PROVIDED AS 'ONCE'.
     Route: 042
     Dates: start: 20031004, end: 20031102
  32. METHYLPREDNISOLONE [Suspect]
     Dosage: FREQUENCY PROVIDED AS 'ONCE'.
     Route: 042
     Dates: start: 20031103
  33. METHYLPREDNISOLONE [Suspect]
     Dosage: FREQUENCY PROVIDED AS 'ONCE'.
     Route: 042
     Dates: start: 20040528
  34. METHYLPREDNISOLONE [Suspect]
     Dosage: FREQUENCY PROVIDED AS 'ONCE'.
     Route: 042
     Dates: start: 20040531
  35. ORTHOCLONE OKT3 [Concomitant]
     Dosage: PROVIDED AS 5MG ON 15 NOV 2003 AND 2.5MG ON 16, 19, 20, 22 AND 24 NOV 2003.
     Dates: start: 20031115, end: 20031124
  36. SULPHAMETHOXAZOLE + TRIMETHOPRIM [Concomitant]
     Route: 048
     Dates: start: 20030927
  37. OMEPRAZOLE [Concomitant]
     Route: 048
     Dates: start: 20030924
  38. NIFEDIPINE [Concomitant]
     Route: 048
     Dates: start: 20031020, end: 20031118
  39. AMLODIPINE [Concomitant]
     Dosage: REPORTED AS 10MG BID 16-NOV-03 TO 26-NOV-03; THEN 5MG BID 27-NOV-2003, ONGOING.
     Route: 048
     Dates: start: 20031116
  40. ALBENDAZOLE [Concomitant]
     Route: 048
     Dates: start: 20040517, end: 20040521
  41. TACROLIMUS [Concomitant]
     Dosage: REPORTED AS THERAPY STARTING ON 2 JUN 2004.  0.5MG BID FROM 6 JUNE 2004.
     Route: 048
     Dates: start: 20040602, end: 20040611

REACTIONS (6)
  - DIARRHOEA [None]
  - GASTROENTERITIS [None]
  - METABOLIC ACIDOSIS [None]
  - PNEUMONIA [None]
  - RENAL IMPAIRMENT [None]
  - STRONGYLOIDIASIS [None]
